FAERS Safety Report 10536168 (Version 1)
Quarter: 2014Q4

REPORT INFORMATION
  Report Type: Spontaneous
  Country: US (occurrence: US)
  Receive Date: 20141022
  Receipt Date: 20141022
  Transmission Date: 20150529
  Serious: No
  Sender: FDA-Public Use
  Company Number: US-RECKITT BENCKISER PHARMACEUTICAL, INC-RB-65514-2014

PATIENT

DRUGS (3)
  1. SUBOXONE [Suspect]
     Active Substance: BUPRENORPHINE HYDROCHLORIDE\NALOXONE HYDROCHLORIDE
     Dosage: SUBOXONE FILM; CUTTING; TAKING THE UNKNOWN DOSE AS BEFORE SELF-WEANING
     Route: 060
     Dates: start: 2014
  2. SUBOXONE [Suspect]
     Active Substance: BUPRENORPHINE HYDROCHLORIDE\NALOXONE HYDROCHLORIDE
     Dosage: SUBOXONE FILM; SELF-WEANING AND TAKING LESS THAN PRESCRIBED; CUTTING
     Route: 060
     Dates: start: 201312, end: 2014
  3. SUBOXONE [Suspect]
     Active Substance: BUPRENORPHINE HYDROCHLORIDE\NALOXONE HYDROCHLORIDE
     Indication: PAIN
     Dosage: SUBOXONE FILM; CUTTING THE FILM TO ACHIEVE UNKNOWN DOSING
     Route: 060
     Dates: start: 2012, end: 201312

REACTIONS (5)
  - Wrong technique in drug usage process [Not Recovered/Not Resolved]
  - Intentional underdose [Recovered/Resolved]
  - Drug withdrawal syndrome [Recovered/Resolved]
  - Off label use [Not Recovered/Not Resolved]
  - Pain [Recovered/Resolved]

NARRATIVE: CASE EVENT DATE: 2012
